FAERS Safety Report 9746190 (Version 2)
Quarter: 2013Q4

REPORT INFORMATION
  Report Type: Spontaneous
  Country: US (occurrence: US)
  Receive Date: 20131211
  Receipt Date: 20131219
  Transmission Date: 20140711
  Serious: Yes (Other)
  Sender: FDA-Public Use
  Company Number: US-RB-060832-13

PATIENT
  Age: 72 Year
  Sex: Female

DRUGS (2)
  1. MUCINEX FAST-MAX SEVERE CONGESTION AND COUGH [Suspect]
     Indication: PRODUCT USED FOR UNKNOWN INDICATION
     Dosage: TOOK 3 DOSES IN TOTAL ON 08-DEC-2013
     Route: 048
     Dates: start: 20131207
  2. COUMADIN [Suspect]
     Indication: PRODUCT USED FOR UNKNOWN INDICATION

REACTIONS (2)
  - Blood urine present [Not Recovered/Not Resolved]
  - International normalised ratio abnormal [Unknown]
